FAERS Safety Report 8574085-5 (Version None)
Quarter: 2012Q3

REPORT INFORMATION
  Report Type: 
  Country: None (occurrence: None)
  Receive Date: 20120806
  Receipt Date: 20120731
  Transmission Date: 20120928
  Serious: Yes (Hospitalization, Other)
  Sender: FDA-Public Use
  Company Number: PHHY2012GB066818

PATIENT
  Age: 23 Year
  Sex: Female
  Weight: 60 kg

DRUGS (4)
  1. CISPLATIN [Suspect]
  2. METHOTREXATE [Suspect]
  3. DOXORUBICIN HCL [Suspect]
  4. MEPACT [Suspect]
     Dosage: 3.4 MG, UNK
     Route: 042

REACTIONS (11)
  - TREMOR [None]
  - ABDOMINAL PAIN [None]
  - CHILLS [None]
  - NEUTROPENIA [None]
  - PYREXIA [None]
  - TACHYCARDIA [None]
  - BLOOD PRESSURE DECREASED [None]
  - ANAEMIA [None]
  - HYPOCALCAEMIA [None]
  - FEELING HOT [None]
  - MALAISE [None]
